FAERS Safety Report 16667654 (Version 1)
Quarter: 2019Q3

REPORT INFORMATION
  Report Type: Spontaneous
  Country: FR (occurrence: FR)
  Receive Date: 20190805
  Receipt Date: 20190805
  Transmission Date: 20191004
  Serious: Yes (Hospitalization)
  Sender: FDA-Public Use
  Company Number: FR-MYLANLABS-2019M1072755

PATIENT
  Age: 83 Year
  Sex: Male
  Weight: 62 kg

DRUGS (6)
  1. PREDNISONE. [Suspect]
     Active Substance: PREDNISONE
     Indication: VASCULITIS
     Dosage: 10 MILLIGRAM, QD
     Route: 048
     Dates: end: 20190702
  2. BISOPROLOL [Suspect]
     Active Substance: BISOPROLOL
     Indication: HYPERTENSION
     Dosage: 25 MILLIGRAM, QD
     Route: 048
     Dates: end: 20190702
  3. ACIDE FOLIQUE [Suspect]
     Active Substance: FOLIC ACID
     Indication: DRUG TOXICITY PROPHYLAXIS
     Dosage: 20 MILLIGRAM, QW
     Dates: end: 20190702
  4. PRETERAX                           /06377001/ [Suspect]
     Active Substance: INDAPAMIDE\PERINDOPRIL
     Indication: HYPERTENSION
     Dosage: 0.5 DOSAGE FORM, QD
     Route: 048
     Dates: end: 20190702
  5. XARELTO [Suspect]
     Active Substance: RIVAROXABAN
     Indication: ATRIAL FIBRILLATION
     Dosage: 1 DOSAGE FORM, QD
     Dates: end: 20190702
  6. IMETH                              /00113801/ [Suspect]
     Active Substance: METHOTREXATE
     Indication: VASCULITIS
     Dosage: 1 DOSAGE FORM, QW
     Route: 058
     Dates: end: 20190702

REACTIONS (2)
  - Pancytopenia [Not Recovered/Not Resolved]
  - Agranulocytosis [Not Recovered/Not Resolved]

NARRATIVE: CASE EVENT DATE: 20190701
